FAERS Safety Report 9917073 (Version 1)
Quarter: 2014Q1

REPORT INFORMATION
  Report Type: Spontaneous
  Country: CA (occurrence: CA)
  Receive Date: 20140221
  Receipt Date: 20140221
  Transmission Date: 20141002
  Serious: Yes (Hospitalization)
  Sender: FDA-Public Use
  Company Number: CA-ALLERGAN-1403209US

PATIENT
  Age: 40 Year
  Sex: Male
  Weight: 90.7 kg

DRUGS (2)
  1. BOTOX [Suspect]
     Indication: OSTEOARTHRITIS
     Dosage: 200 UNITS, SINGLE
     Route: 014
  2. BOTOX [Suspect]
     Dosage: 300 UNITS, SINGLE
     Route: 014

REACTIONS (2)
  - Arthralgia [Recovered/Resolved]
  - Off label use [Unknown]
